FAERS Safety Report 23526072 (Version 1)
Quarter: 2024Q1

REPORT INFORMATION
  Report Type: Spontaneous
  Country: JP (occurrence: JP)
  Receive Date: 20240215
  Receipt Date: 20240215
  Transmission Date: 20240410
  Serious: Yes (Death, Life-Threatening, Hospitalization, Other)
  Sender: FDA-Public Use
  Company Number: JP-MACLEODS PHARMACEUTICALS US LTD-MAC2024045764

PATIENT

DRUGS (2)
  1. OLANZAPINE [Suspect]
     Active Substance: OLANZAPINE
     Indication: Obsessive-compulsive disorder
     Dosage: UNK (LONG-TERM)
     Route: 065
  2. OLANZAPINE [Suspect]
     Active Substance: OLANZAPINE
     Indication: Schizophrenia

REACTIONS (21)
  - Kwashiorkor [Fatal]
  - Hepatic function abnormal [Fatal]
  - Anaemia [Fatal]
  - Hypotension [Fatal]
  - Demyelination [Fatal]
  - Generalised oedema [Fatal]
  - Pleural effusion [Fatal]
  - Hypoglycaemia [Fatal]
  - Ascites [Fatal]
  - Hypothermia [Fatal]
  - Cytotoxic lesions of corpus callosum [Fatal]
  - Sepsis [Fatal]
  - Splenitis [Fatal]
  - Pyelonephritis acute [Fatal]
  - Encephalitis [Fatal]
  - Cytotoxic oedema [Fatal]
  - Pneumonia [Fatal]
  - Cytotoxic lesions of corpus callosum [Fatal]
  - Diarrhoea [Fatal]
  - Anaemia [Fatal]
  - Encephalopathy [Fatal]
